FAERS Safety Report 9910856 (Version 1)
Quarter: 2014Q1

REPORT INFORMATION
  Report Type: Spontaneous
  Country: NL (occurrence: NL)
  Receive Date: 20140219
  Receipt Date: 20140219
  Transmission Date: 20141002
  Serious: Yes (Death, Other)
  Sender: FDA-Public Use
  Company Number: NL-TEVA-463267ISR

PATIENT
  Age: 67 Year
  Sex: Male
  Weight: 79 kg

DRUGS (8)
  1. METHOTREXAAT [Suspect]
     Indication: ENTEROPATHY-ASSOCIATED T-CELL LYMPHOMA
     Dosage: STANDARD VIM PROTOCOL. CONCENTRATE FOR SOLUTION FOR INFUSION.
     Route: 042
     Dates: start: 20131126, end: 20131130
  2. ETOPOSIDE INFOPL CONC 20MG/ML [Suspect]
     Indication: ENTEROPATHY-ASSOCIATED T-CELL LYMPHOMA
     Dosage: STANDARD VIM PROTOCOL. CONCENTRATE FOR SOLUTION FOR INFUSION
     Route: 042
     Dates: start: 20131126, end: 20131130
  3. IFOSFAMIDE [Suspect]
     Indication: ENTEROPATHY-ASSOCIATED T-CELL LYMPHOMA
     Dosage: STANDARD VIM (IFOSPHAMIDE, METHOTREXATE, ETOPOSIDE) PROTOCOL. POWDER FOR SOLUTION FOR INJECTION
     Route: 042
     Dates: start: 20131126, end: 20131130
  4. PIPERACILLINE/TAZOBACTAM [Suspect]
     Dosage: DOSE UNKNOWN. POWDER FOR SOLUTION FOR INJECTION.
     Route: 042
  5. PANTOZOL [Concomitant]
     Dosage: GASTRO-RESISTANT TABLET
     Route: 048
  6. FUNGIZONE SUSPENSIE 100MG/ML [Concomitant]
     Route: 048
  7. VALACICLOVIR TABLET  250MG [Concomitant]
     Route: 048
  8. CIPROXIN SUSPENSIE  50MG/ML [Concomitant]
     Route: 048

REACTIONS (2)
  - Hepatic failure [Fatal]
  - Neurotoxicity [Recovered/Resolved]
